FAERS Safety Report 4952475-7 (Version None)
Quarter: 2006Q1

REPORT INFORMATION
  Report Type: 
  Country: None (occurrence: None)
  Receive Date: 20060323
  Receipt Date: 20050713
  Transmission Date: 20060701
  Serious: Yes (Hospitalization, Other)
  Sender: FDA-Public Use
  Company Number: US-MERCK-0507USA01812

PATIENT
  Age: 68 Year
  Sex: Female
  Weight: 80 kg

DRUGS (9)
  1. VIOXX [Suspect]
     Indication: ARTHRITIS
     Route: 048
     Dates: start: 20010401, end: 20041001
  2. ONE-A-DAY ESSENTIAL VITAMINS [Concomitant]
     Route: 065
  3. PREMARIN [Concomitant]
     Route: 065
  4. PAMINE BROMIDE [Concomitant]
     Route: 065
  5. PROTONIX [Concomitant]
     Route: 065
  6. ADVAIR DISKUS 100/50 [Concomitant]
     Route: 065
  7. TOPROL-XL [Concomitant]
     Route: 065
  8. PROCARDIA XL [Concomitant]
     Route: 065
  9. ASPIRIN [Concomitant]
     Route: 065

REACTIONS (11)
  - ANGINA PECTORIS [None]
  - ANGIOPATHY [None]
  - CEREBRAL INFARCTION [None]
  - CEREBROVASCULAR ACCIDENT [None]
  - CHRONIC OBSTRUCTIVE PULMONARY DISEASE [None]
  - DYSPNOEA [None]
  - HEART RATE IRREGULAR [None]
  - HYPERTENSION [None]
  - MITRAL VALVE PROLAPSE [None]
  - ROTATOR CUFF REPAIR [None]
  - TRANSIENT ISCHAEMIC ATTACK [None]
